FAERS Safety Report 5980278-3 (Version None)
Quarter: 2008Q4

REPORT INFORMATION
  Report Type: 
  Country: None (occurrence: None)
  Receive Date: 20081205
  Receipt Date: 20081127
  Transmission Date: 20090506
  Serious: Yes (Other)
  Sender: FDA-Public Use
  Company Number: PHHY2008GB25355

PATIENT
  Sex: Male
  Weight: 64 kg

DRUGS (4)
  1. TASIGNA [Suspect]
     Indication: CHRONIC MYELOID LEUKAEMIA
     Dosage: 800 MG/DAY
     Route: 048
     Dates: start: 20080904
  2. ONDANSETRON [Concomitant]
     Indication: MALAISE
     Dosage: 8 MG/DAY
     Route: 048
     Dates: start: 20080904
  3. METOCLOPRAMIDE [Concomitant]
     Indication: CONSTIPATION
     Dosage: 30 MG/DAY
     Route: 048
     Dates: start: 20080904
  4. OMEPRAZOLE [Concomitant]
     Indication: ABDOMINAL PAIN UPPER
     Dosage: 30 MG/DAY
     Route: 048
     Dates: start: 20080904

REACTIONS (1)
  - EOSINOPHILIA [None]
